FAERS Safety Report 6847611-1 (Version None)
Quarter: 2010Q3

REPORT INFORMATION
  Report Type: 
  Country: None (occurrence: None)
  Receive Date: 20100716
  Receipt Date: 20100702
  Transmission Date: 20110219
  Serious: Yes (Hospitalization)
  Sender: FDA-Public Use
  Company Number: PHHY2010FR36963

PATIENT
  Age: 18 Year
  Sex: Female
  Weight: 50 kg

DRUGS (2)
  1. PARLODEL [Suspect]
     Indication: LACTATION INHIBITION THERAPY
     Dosage: TABLET (2.5 MG)
     Route: 048
     Dates: start: 20100425, end: 20100517
  2. CERAZETTE [Concomitant]
     Indication: CONTRACEPTION

REACTIONS (2)
  - DELIRIUM [None]
  - HALLUCINATION [None]
